FAERS Safety Report 19187105 (Version 1)
Quarter: 2021Q2

REPORT INFORMATION
  Report Type: Spontaneous
  Country: ES (occurrence: ES)
  Receive Date: 20210428
  Receipt Date: 20210428
  Transmission Date: 20210717
  Serious: Yes (Hospitalization)
  Sender: FDA-Public Use
  Company Number: ES-BEH-2021131143

PATIENT
  Age: 66 Year
  Sex: Male
  Weight: 80 kg

DRUGS (1)
  1. PRIVIGEN [Suspect]
     Active Substance: HUMAN IMMUNOGLOBULIN G
     Indication: AXONAL AND DEMYELINATING POLYNEUROPATHY
     Dosage: 150 MILLIGRAM, Q3W (ADMINISTERED IN 3 DAYS)
     Route: 042
     Dates: start: 20210413, end: 20210413

REACTIONS (3)
  - Cerebrovascular accident [Unknown]
  - No adverse event [Unknown]
  - Off label use [Unknown]

NARRATIVE: CASE EVENT DATE: 20210414
